FAERS Safety Report 13336188 (Version 1)
Quarter: 2017Q1

REPORT INFORMATION
  Report Type: Spontaneous
  Country: US (occurrence: US)
  Receive Date: 20170314
  Receipt Date: 20170314
  Transmission Date: 20170428
  Serious: Yes (Hospitalization, Other)
  Sender: FDA-Public Use
  Company Number: US-ACTELION-A-US2017-150827

PATIENT
  Age: 53 Year
  Sex: Female
  Weight: 86.62 kg

DRUGS (4)
  1. UPTRAVI [Suspect]
     Active Substance: SELEXIPAG
     Indication: PULMONARY ARTERIAL HYPERTENSION
     Route: 048
  2. AMBRISENTAN [Suspect]
     Active Substance: AMBRISENTAN
     Indication: PRODUCT USED FOR UNKNOWN INDICATION
     Dosage: 10 MG, QD
     Route: 065
     Dates: start: 20150506
  3. REVATIO [Concomitant]
     Active Substance: SILDENAFIL CITRATE
  4. VELETRI [Concomitant]
     Active Substance: EPOPROSTENOL
     Indication: PULMONARY ARTERIAL HYPERTENSION

REACTIONS (24)
  - Pulmonary arterial hypertension [Unknown]
  - Pulmonary oedema [Unknown]
  - Abdominal distension [Unknown]
  - Vertigo [Unknown]
  - Increased upper airway secretion [Not Recovered/Not Resolved]
  - Lower respiratory tract congestion [Recovering/Resolving]
  - Disease progression [Unknown]
  - Facial pain [Unknown]
  - Diarrhoea [Unknown]
  - Dizziness [Not Recovered/Not Resolved]
  - Activities of daily living impaired [Not Recovered/Not Resolved]
  - Eye pain [Unknown]
  - Pain [Recovering/Resolving]
  - Headache [Unknown]
  - Decreased appetite [Unknown]
  - Condition aggravated [Unknown]
  - Sinusitis [Unknown]
  - Asthenia [Unknown]
  - Unevaluable event [Unknown]
  - Nausea [Not Recovered/Not Resolved]
  - Sinus congestion [Unknown]
  - Cough [Recovering/Resolving]
  - Weight increased [Unknown]
  - Dyspnoea [Not Recovered/Not Resolved]

NARRATIVE: CASE EVENT DATE: 20170228
